FAERS Safety Report 11577395 (Version 1)
Quarter: 2015Q3

REPORT INFORMATION
  Report Type: Spontaneous
  Country: US (occurrence: US)
  Receive Date: 20150930
  Receipt Date: 20150930
  Transmission Date: 20151125
  Serious: No
  Sender: FDA-Public Use
  Company Number: US-DRREDDYS-USA/USA/15/0047120

PATIENT
  Sex: Female

DRUGS (1)
  1. AMOXICILLIN W/CLAVULANATE POTASSIUM TABLETS [Suspect]
     Active Substance: AMOXICILLIN\CLAVULANATE POTASSIUM
     Indication: RESPIRATORY DISORDER
     Route: 048
     Dates: start: 2014

REACTIONS (2)
  - Nausea [Recovered/Resolved]
  - Malaise [Unknown]
